FAERS Safety Report 20514769 (Version 1)
Quarter: 2022Q1

REPORT INFORMATION
  Report Type: Spontaneous
  Country: US (occurrence: None)
  Receive Date: 20220224
  Receipt Date: 20220224
  Transmission Date: 20220423
  Serious: Yes (Other)
  Sender: FDA-Public Use
  Company Number: None

PATIENT
  Age: 64 Year
  Sex: Male
  Weight: 112 kg

DRUGS (5)
  1. EVUSHELD [Suspect]
     Active Substance: CILGAVIMAB\TIXAGEVIMAB
     Dates: start: 20220223, end: 20220223
  2. Amlodipine 10mg daily [Concomitant]
  3. Atorvastatin 80mg daily [Concomitant]
  4. Lisinopril 20mg daily [Concomitant]
  5. Ibrutinib 420mg daily [Concomitant]
     Dates: start: 20200114

REACTIONS (4)
  - Vomiting [None]
  - Diarrhoea [None]
  - Fatigue [None]
  - Headache [None]

NARRATIVE: CASE EVENT DATE: 20220224
